FAERS Safety Report 4955066-7 (Version None)
Quarter: 2006Q1

REPORT INFORMATION
  Report Type: 
  Country: None (occurrence: None)
  Receive Date: 20060322
  Receipt Date: 20060301
  Transmission Date: 20060701
  Serious: Yes (Hospitalization)
  Sender: FDA-Public Use
  Company Number: US_030796106

PATIENT
  Age: 1 Day
  Weight: 3.6 kg

DRUGS (4)
  1. INSULIN             (INSULIN, ANIMAL) [Suspect]
     Dosage: TRANSPLACENTAL
     Route: 064
  2. INSULIN, ANIMAL (INSULIN, ANIMAL PORK PROTAMINE ZINC) VIAL [Suspect]
     Dosage: TRANSPLACENTAL
     Route: 064
  3. INSULIN, ANIMAL (INSULIN, ANIMAL) [Suspect]
     Dosage: TRANSPLACENTAL
     Route: 064
     Dates: end: 19620919
  4. INSULIN, ANIMAL (INSULIN, ANIMAL) [Suspect]
     Dosage: TRANSPLACENTAL
     Route: 064
     Dates: end: 19620919

REACTIONS (5)
  - BLOOD GLUCOSE FLUCTUATION [None]
  - CAESAREAN SECTION [None]
  - DRUG EXPOSURE DURING PREGNANCY [None]
  - PREGNANCY [None]
  - PREMATURE LABOUR [None]
